FAERS Safety Report 6805123-5 (Version None)
Quarter: 2010Q2

REPORT INFORMATION
  Report Type: 
  Country: None (occurrence: None)
  Receive Date: 20100628
  Receipt Date: 20070905
  Transmission Date: 20101027
  Serious: No
  Sender: FDA-Public Use
  Company Number: US-PFIZER INC-2007075054

PATIENT
  Sex: Female

DRUGS (2)
  1. GEODON [Suspect]
     Indication: SCHIZOAFFECTIVE DISORDER
  2. QUINAPRIL [Concomitant]

REACTIONS (4)
  - DIZZINESS [None]
  - FATIGUE [None]
  - POLLAKIURIA [None]
  - THIRST [None]
